FAERS Safety Report 25187838 (Version 1)
Quarter: 2025Q2

REPORT INFORMATION
  Report Type: Other
  Country: US (occurrence: US)
  Receive Date: 20250411
  Receipt Date: 20250411
  Transmission Date: 20250716
  Serious: Yes (Death, Other)
  Sender: ALVOGEN
  Company Number: US-ALVOGEN-2025096917

PATIENT
  Age: 87 Year
  Sex: Male

DRUGS (5)
  1. LEVOTHYROXINE [Suspect]
     Active Substance: LEVOTHYROXINE
     Indication: Suicide attempt
     Route: 048
  2. BUPROPION [Suspect]
     Active Substance: BUPROPION
     Indication: Suicide attempt
     Route: 048
  3. MIRTAZAPINE [Suspect]
     Active Substance: MIRTAZAPINE
     Indication: Suicide attempt
     Route: 048
  4. AMIODARONE [Suspect]
     Active Substance: AMIODARONE
     Indication: Suicide attempt
     Route: 048
  5. APIXABAN [Suspect]
     Active Substance: APIXABAN
     Indication: Suicide attempt
     Route: 048

REACTIONS (1)
  - Completed suicide [Fatal]
